FAERS Safety Report 20027177 (Version 1)
Quarter: 2021Q4

REPORT INFORMATION
  Report Type: Spontaneous
  Country: US (occurrence: US)
  Receive Date: 20211103
  Receipt Date: 20211103
  Transmission Date: 20220303
  Serious: No
  Sender: FDA-Public Use
  Company Number: US-SA-SAC20211029001072

PATIENT
  Age: 50 Year
  Sex: Female

DRUGS (13)
  1. AUBAGIO [Suspect]
     Active Substance: TERIFLUNOMIDE
     Indication: Multiple sclerosis
     Dosage: 1 DF, QD
     Route: 048
  2. LISINOPRIL [Concomitant]
     Active Substance: LISINOPRIL
  3. PAROXETINE HYDROCHLORIDE [Concomitant]
     Active Substance: PAROXETINE HYDROCHLORIDE
  4. ALPRAZOLAM [Concomitant]
     Active Substance: ALPRAZOLAM
  5. ESCITALOPRAM [Concomitant]
     Active Substance: ESCITALOPRAM OXALATE
  6. ESZOPICLONE [Concomitant]
     Active Substance: ESZOPICLONE
  7. FENOFIBRATE [Concomitant]
     Active Substance: FENOFIBRATE
  8. TIZANIDINE [Concomitant]
     Active Substance: TIZANIDINE
  9. ZOLPIDEM [Concomitant]
     Active Substance: ZOLPIDEM TARTRATE
  10. AMITRIPTYLINE [Concomitant]
     Active Substance: AMITRIPTYLINE
  11. DOXYCYCLINE HYDROCHLORIDE [Concomitant]
     Active Substance: DOXYCYCLINE HYDROCHLORIDE
  12. TRETINOIN [Concomitant]
     Active Substance: TRETINOIN
  13. ACETYLSALICYLIC ACID;BUTALBITAL;CAFFEINE;CODEINE [Concomitant]

REACTIONS (1)
  - Chloasma [Unknown]

NARRATIVE: CASE EVENT DATE: 20210201
